FAERS Safety Report 5688676-2 (Version None)
Quarter: 2008Q1

REPORT INFORMATION
  Report Type: 
  Country: None (occurrence: None)
  Receive Date: 20080331
  Receipt Date: 20080325
  Transmission Date: 20080703
  Serious: Yes (Hospitalization)
  Sender: FDA-Public Use
  Company Number: PHBS2007JP18667

PATIENT
  Age: 9 Year
  Sex: Female

DRUGS (4)
  1. SIMULECT [Suspect]
     Indication: RENAL TRANSPLANT
     Dosage: 20 MG, UNK
     Route: 042
  2. CYCLOSPORINE [Suspect]
     Indication: RENAL TRANSPLANT
  3. CELLCEPT [Suspect]
     Indication: RENAL TRANSPLANT
     Route: 048
  4. METHYLPREDNISOLONE [Suspect]
     Indication: RENAL TRANSPLANT

REACTIONS (7)
  - CALCINOSIS [None]
  - CYSTITIS BACTERIAL [None]
  - MUCOSAL INFLAMMATION [None]
  - PYURIA [None]
  - STAPHYLOCOCCAL INFECTION [None]
  - THERAPEUTIC PROCEDURE [None]
  - VESICOURETERIC REFLUX [None]
